FAERS Safety Report 9867604 (Version 1)
Quarter: 2014Q1

REPORT INFORMATION
  Report Type: Spontaneous
  Country: US (occurrence: US)
  Receive Date: 20140204
  Receipt Date: 20140204
  Transmission Date: 20141002
  Serious: No
  Sender: FDA-Public Use
  Company Number: US-GALDERMA-US13003390

PATIENT
  Age: 17 Year
  Sex: Male

DRUGS (5)
  1. EPIDUO [Suspect]
     Indication: ACNE
     Route: 061
     Dates: start: 20131022, end: 20131026
  2. MYERS CLEANSER [Suspect]
     Indication: THERAPEUTIC SKIN CARE TOPICAL
     Route: 061
     Dates: start: 20131022, end: 20131025
  3. MYERS MOISTURIZING CREAM [Suspect]
     Indication: DRY SKIN PROPHYLAXIS
     Route: 061
     Dates: start: 20131022, end: 20131025
  4. CETAPHIL GENTLE SKIN CLEANSER [Concomitant]
     Indication: THERAPEUTIC SKIN CARE TOPICAL
     Route: 061
     Dates: start: 20131026, end: 20131027
  5. CETAPHIL MOISTURIZING CREAM [Concomitant]
     Indication: DRY SKIN PROPHYLAXIS
     Route: 061
     Dates: start: 20131026, end: 20131027

REACTIONS (8)
  - Lacrimation increased [Not Recovered/Not Resolved]
  - Skin warm [Not Recovered/Not Resolved]
  - Skin burning sensation [Not Recovered/Not Resolved]
  - Erythema [Not Recovered/Not Resolved]
  - Dermatitis [Not Recovered/Not Resolved]
  - Swelling face [Not Recovered/Not Resolved]
  - Dry skin [Not Recovered/Not Resolved]
  - Skin exfoliation [Not Recovered/Not Resolved]
